FAERS Safety Report 6245399-9 (Version None)
Quarter: 2009Q2

REPORT INFORMATION
  Report Type: 
  Country: None (occurrence: None)
  Receive Date: 20090619
  Receipt Date: 20090318
  Transmission Date: 20091009
  Serious: No
  Sender: FDA-Public Use
  Company Number: ALL1-2009-00731

PATIENT
  Sex: Female
  Weight: 45.4 kg

DRUGS (4)
  1. VYVANSE [Suspect]
     Indication: ATTENTION DEFICIT/HYPERACTIVITY DISORDER
     Dosage: 70 MG, 1X/DAY:QD, ORAL
     Route: 048
     Dates: start: 20090201
  2. ABILIFY (ARIPIPRAZOLE) TABLET [Concomitant]
  3. ALBUTEROL /00139501/ (SALBUTAMOL) [Concomitant]
  4. XOPENEX [Concomitant]

REACTIONS (3)
  - AGGRESSION [None]
  - DISTURBANCE IN ATTENTION [None]
  - EDUCATIONAL PROBLEM [None]
